FAERS Safety Report 4583619-7 (Version None)
Quarter: 2005Q1

REPORT INFORMATION
  Report Type: 
  Country: None (occurrence: None)
  Receive Date: 20050211
  Receipt Date: 20050127
  Transmission Date: 20050727
  Serious: Yes (Other)
  Sender: FDA-Public Use
  Company Number: 141233USA

PATIENT
  Age: 41 Year
  Sex: Female

DRUGS (2)
  1. COPAXONE [Suspect]
     Indication: MULTIPLE SCLEROSIS
  2. SYNTHROID [Concomitant]

REACTIONS (2)
  - SCAR [None]
  - SKIN NECROSIS [None]
